FAERS Safety Report 6730058-6 (Version None)
Quarter: 2010Q2

REPORT INFORMATION
  Report Type: 
  Country: None (occurrence: None)
  Receive Date: 20100513
  Receipt Date: 20100503
  Transmission Date: 20101027
  Serious: Yes (Other)
  Sender: FDA-Public Use
  Company Number: 2010SP025263

PATIENT
  Age: 56 Year
  Sex: Female

DRUGS (3)
  1. SAPHRIS [Suspect]
     Indication: DRUG USE FOR UNKNOWN INDICATION
     Dosage: 5 MG; QD
  2. KLONOPIN [Concomitant]
  3. CYMBALTA [Concomitant]

REACTIONS (5)
  - DIZZINESS [None]
  - HALLUCINATION, VISUAL [None]
  - INSOMNIA [None]
  - ORAL DISORDER [None]
  - VISUAL IMPAIRMENT [None]
